FAERS Safety Report 5674780-1 (Version None)
Quarter: 2008Q1

REPORT INFORMATION
  Report Type: 
  Country: None (occurrence: None)
  Receive Date: 20080320
  Receipt Date: 20080314
  Transmission Date: 20080703
  Serious: Yes (Other)
  Sender: FDA-Public Use
  Company Number: US-ASTRAZENECA-2008UW05226

PATIENT
  Age: 56 Year
  Sex: Male
  Weight: 105.2 kg

DRUGS (8)
  1. METOPROLOL SUCCINATE [Suspect]
     Indication: HYPERTENSION
     Dosage: (SCORED) SPLIT TABLET IN HALF
     Route: 048
     Dates: start: 20070401
  2. METOPROLOL SUCCINATE [Suspect]
     Dosage: (NON-SCORED) SPLIT TABLET IN HALF
     Dates: start: 20080301
  3. LISINOPRIL [Concomitant]
  4. GLYBURIDE [Concomitant]
  5. METFORMIN HCL [Concomitant]
  6. ALLOPURINOL [Concomitant]
  7. ASPIRIN [Concomitant]
  8. HYDROCHLOROTHIAZIDE [Concomitant]

REACTIONS (3)
  - HEART RATE INCREASED [None]
  - MEDICATION ERROR [None]
  - MUSCLE INJURY [None]
